FAERS Safety Report 5455607-X (Version None)
Quarter: 2007Q3

REPORT INFORMATION
  Report Type: 
  Country: None (occurrence: None)
  Receive Date: 20070913
  Receipt Date: 20070913
  Transmission Date: 20080115
  Serious: Yes (Death)
  Sender: FDA-Public Use
  Company Number: None

PATIENT
  Age: 47 Year
  Sex: Female
  Weight: 68 kg

DRUGS (4)
  1. MELPHALAN [Suspect]
     Indication: APLASTIC ANAEMIA
     Dosage: 126 TIMES ONE IV
     Route: 042
     Dates: start: 20070828, end: 20070828
  2. FLUDARABINE PHOSPHATE [Suspect]
     Dosage: 54 DAILY TIMES 5 IV
     Route: 042
     Dates: start: 20070824, end: 20070828
  3. METHYLPREDNISOLONE [Concomitant]
  4. ATGAM [Concomitant]

REACTIONS (8)
  - CARDIAC ARREST [None]
  - CARDIAC FAILURE CONGESTIVE [None]
  - HYPOTENSION [None]
  - LEFT VENTRICULAR DYSFUNCTION [None]
  - RENAL IMPAIRMENT [None]
  - STEM CELL TRANSPLANT [None]
  - STENOTROPHOMONAS INFECTION [None]
  - SUPRAVENTRICULAR TACHYCARDIA [None]
